FAERS Safety Report 12718240 (Version 9)
Quarter: 2018Q1

REPORT INFORMATION
  Report Type: Spontaneous
  Country: GB (occurrence: GB)
  Receive Date: 20160906
  Receipt Date: 20180225
  Transmission Date: 20180508
  Serious: Yes (Life-Threatening, Hospitalization, Other)
  Sender: FDA-Public Use
  Company Number: GB-VIIV HEALTHCARE LIMITED-GB2016GSK128526

PATIENT
  Age: 28 Year
  Sex: Female

DRUGS (4)
  1. PARACETAMOL [Concomitant]
     Active Substance: ACETAMINOPHEN
     Dosage: 500 MG, UNK
     Route: 065
  2. TRUVADA [Concomitant]
     Active Substance: EMTRICITABINE\TENOFOVIR DISOPROXIL FUMARATE
     Indication: HIV INFECTION
     Dosage: UNK
  3. TRIUMEQ [Suspect]
     Active Substance: ABACAVIR SULFATE\DOLUTEGRAVIR SODIUM\LAMIVUDINE
     Indication: HIV INFECTION
     Dosage: UNK
     Route: 048
     Dates: start: 20160122, end: 201603
  4. EMTRICITABINE + TENOFOVIR ALAFENAMIDE FUMARATE [Suspect]
     Active Substance: EMTRICITABINE\TENOFOVIR ALAFENAMIDE FUMARATE
     Indication: HIV INFECTION
     Dosage: UNK

REACTIONS (13)
  - Liver transplant [Recovered/Resolved]
  - Transaminases increased [Recovering/Resolving]
  - Transplant rejection [Recovering/Resolving]
  - Subacute hepatic failure [Recovered/Resolved]
  - Coagulopathy [Recovering/Resolving]
  - Hepatic necrosis [Recovering/Resolving]
  - Nausea [Recovering/Resolving]
  - Hepatic encephalopathy [Recovering/Resolving]
  - Acute hepatic failure [Recovered/Resolved]
  - Lethargy [Recovering/Resolving]
  - Drug-induced liver injury [Recovering/Resolving]
  - Jaundice [Recovering/Resolving]
  - Diarrhoea [Recovering/Resolving]

NARRATIVE: CASE EVENT DATE: 201604
